FAERS Safety Report 15153282 (Version 2)
Quarter: 2018Q3

REPORT INFORMATION
  Report Type: Report from Study
  Country: US (occurrence: AR)
  Receive Date: 20180717
  Receipt Date: 20180803
  Transmission Date: 20181010
  Serious: Yes (Death, Hospitalization, Other)
  Sender: FDA-Public Use
  Company Number: US-SUNOVION-2018SUN002781

PATIENT
  Sex: Male

DRUGS (8)
  1. RIVOTRIL [Concomitant]
     Active Substance: CLONAZEPAM
     Indication: PRODUCT USED FOR UNKNOWN INDICATION
     Route: 065
  2. MEMANTINE. [Concomitant]
     Active Substance: MEMANTINE
     Indication: PRODUCT USED FOR UNKNOWN INDICATION
     Dosage: 28 MG, UNK
     Route: 065
  3. INDACATEROL [Suspect]
     Active Substance: INDACATEROL
     Indication: CHRONIC OBSTRUCTIVE PULMONARY DISEASE
     Dosage: 300 OT, QD
     Route: 055
  4. TEGRETOL [Suspect]
     Active Substance: CARBAMAZEPINE
     Indication: TACHYARRHYTHMIA
     Route: 065
  5. INCORIL [Concomitant]
     Indication: PRODUCT USED FOR UNKNOWN INDICATION
     Dosage: 60 MG, UNK
     Route: 065
  6. PREGABALIN. [Concomitant]
     Active Substance: PREGABALIN
     Indication: PRODUCT USED FOR UNKNOWN INDICATION
     Route: 065
  7. GLYCOPYRROLATE. [Suspect]
     Active Substance: GLYCOPYRROLATE
     Indication: CHRONIC OBSTRUCTIVE PULMONARY DISEASE
     Dosage: UNK, QD
     Route: 055
  8. SINTROM [Concomitant]
     Active Substance: ACENOCOUMAROL
     Indication: ARTERIAL DISORDER
     Route: 065

REACTIONS (4)
  - Brain stem haemorrhage [Fatal]
  - Malaise [Unknown]
  - Loss of consciousness [Unknown]
  - Cardiac disorder [Unknown]
